FAERS Safety Report 4944987-7 (Version None)
Quarter: 2006Q1

REPORT INFORMATION
  Report Type: 
  Country: None (occurrence: None)
  Receive Date: 20060117
  Receipt Date: 20050511
  Transmission Date: 20060701
  Serious: Yes (Hospitalization)
  Sender: FDA-Public Use
  Company Number: A03200501406

PATIENT
  Age: 75 Year
  Sex: Female
  Weight: 58.5 kg

DRUGS (11)
  1. PLAVIX [Suspect]
     Indication: HEART VALVE REPLACEMENT
     Dosage: 75 MG QD - ORAL
     Route: 048
     Dates: start: 20041102, end: 20050430
  2. PLAVIX [Suspect]
     Indication: STENT PLACEMENT
     Dosage: 75 MG QD - ORAL
     Route: 048
     Dates: start: 20041102, end: 20050430
  3. PLAVIX [Suspect]
     Indication: THROMBOSIS
     Dosage: 75 MG QD - ORAL
     Route: 048
     Dates: start: 20041102, end: 20050430
  4. METOPROLOL TARTRATE [Concomitant]
  5. LOSARTAN POTASSIUM [Concomitant]
  6. POTASSIUM [Concomitant]
  7. AMITRIPTYLINE HYDROCHLORIDE [Concomitant]
  8. ACETYLSALICYLIC ACID SRT [Concomitant]
  9. FERROUS SULFATE TAB [Concomitant]
  10. GLYCERYL TRINITRATE [Concomitant]
  11. ALTOPREV [Concomitant]

REACTIONS (7)
  - ASTHENIA [None]
  - CONTUSION [None]
  - DIZZINESS [None]
  - FATIGUE [None]
  - GASTROINTESTINAL HAEMORRHAGE [None]
  - LARGE INTESTINAL HAEMORRHAGE [None]
  - LOSS OF CONSCIOUSNESS [None]
